FAERS Safety Report 25488524 (Version 1)
Quarter: 2025Q2

REPORT INFORMATION
  Report Type: Spontaneous
  Country: US (occurrence: None)
  Receive Date: 20250627
  Receipt Date: 20250627
  Transmission Date: 20250716
  Serious: Yes (Other)
  Sender: INCYTE
  Company Number: US-INCYTE CORPORATION-2025IN006888

PATIENT
  Age: 79 Year

DRUGS (1)
  1. JAKAFI [Suspect]
     Active Substance: RUXOLITINIB
     Indication: Product used for unknown indication
     Dosage: 10 MILLIGRAM, BID

REACTIONS (5)
  - Skin cancer [Unknown]
  - Micturition disorder [Recovered/Resolved]
  - Infection [Recovered/Resolved]
  - Asthenia [Unknown]
  - Nausea [Unknown]
